FAERS Safety Report 10045406 (Version 3)
Quarter: 2014Q4

REPORT INFORMATION
  Report Type: Report from Study
  Country: US (occurrence: US)
  Receive Date: 20140328
  Receipt Date: 20141124
  Transmission Date: 20150528
  Serious: Yes (Hospitalization)
  Sender: FDA-Public Use
  Company Number: PHHO2014US001873

PATIENT
  Age: 85 Year
  Sex: Female
  Weight: 75.5 kg

DRUGS (19)
  1. BLINDED [Suspect]
     Active Substance: UNSPECIFIED INGREDIENT
     Indication: ANAEMIA
     Dosage: CODE NOT BROKEN
     Route: 058
     Dates: start: 20131015, end: 20140123
  2. BABY ASPIRIN [Concomitant]
     Active Substance: ASPIRIN
     Indication: PROPHYLAXIS
     Dosage: 81 MG, OD
     Route: 065
  3. PHOSLO [Concomitant]
     Active Substance: CALCIUM ACETATE
     Indication: HYPERPHOSPHATAEMIA
     Dosage: 667 MG, TID
     Route: 065
  4. BLINDED ERYPO [Suspect]
     Active Substance: UNSPECIFIED INGREDIENT
     Indication: ANAEMIA
     Dosage: CODE NOT BROKEN
     Route: 058
     Dates: start: 20131015, end: 20140123
  5. ZOLPIDEM [Concomitant]
     Active Substance: ZOLPIDEM\ZOLPIDEM TARTRATE
     Indication: PRODUCT USED FOR UNKNOWN INDICATION
     Dosage: 5 MG, QD
     Route: 065
  6. LUMIGAN [Concomitant]
     Active Substance: BIMATOPROST
     Indication: GLAUCOMA
     Dosage: 1 DF, QD (C/D BID)
  7. AMLODIPINE [Concomitant]
     Active Substance: AMLODIPINE BESYLATE
     Indication: PRODUCT USED FOR UNKNOWN INDICATION
     Dosage: UNK
     Route: 065
  8. CYMBALTA [Concomitant]
     Active Substance: DULOXETINE HYDROCHLORIDE
     Indication: PRODUCT USED FOR UNKNOWN INDICATION
     Dosage: UNK
     Route: 065
  9. VALSARTAN. [Concomitant]
     Active Substance: VALSARTAN
     Indication: PRODUCT USED FOR UNKNOWN INDICATION
     Dosage: UNK
     Route: 065
  10. VITA-D [Concomitant]
     Indication: SUPPLEMENTATION THERAPY
     Route: 065
  11. VITAMIN B12 [Concomitant]
     Active Substance: CYANOCOBALAMIN
     Indication: PRODUCT USED FOR UNKNOWN INDICATION
     Dosage: 500 UG, QD
     Route: 065
  12. BLINDED NO TREATMENT RECEIVED [Suspect]
     Active Substance: UNSPECIFIED INGREDIENT
     Indication: ANAEMIA
     Dosage: CODE NOT BROKEN
     Route: 058
     Dates: start: 20131015, end: 20140123
  13. RANITIDINE [Concomitant]
     Active Substance: RANITIDINE\RANITIDINE HYDROCHLORIDE
     Indication: GASTROOESOPHAGEAL REFLUX DISEASE
     Dosage: 150 MG, BID (1 TAB QD)
     Route: 065
     Dates: start: 20120501
  14. MIRALAX [Concomitant]
     Active Substance: POLYETHYLENE GLYCOL 3350
     Indication: CONSTIPATION
     Dosage: 7.5 MG, OD
     Route: 065
     Dates: start: 20101109
  15. LISINOPRIL. [Concomitant]
     Active Substance: LISINOPRIL
     Indication: HYPERTENSION
     Dosage: 20 MG, OD
     Route: 065
     Dates: start: 20101221
  16. LABETALOL [Concomitant]
     Active Substance: LABETALOL\LABETALOL HYDROCHLORIDE
     Indication: HYPERTENSION
     Dosage: 200 MG, BID
     Dates: start: 20101221, end: 201312
  17. EPOETIN ALFA [Suspect]
     Active Substance: ERYTHROPOIETIN
     Indication: ANAEMIA
     Dosage: CODE NOT BROKEN
     Route: 058
     Dates: start: 20131015, end: 20140123
  18. ALPRAZOLAM. [Concomitant]
     Active Substance: ALPRAZOLAM
     Indication: ANXIETY
     Dosage: 0.25 MG, PRN
     Route: 065
     Dates: start: 20130502
  19. COMBIGAN [Concomitant]
     Active Substance: BRIMONIDINE TARTRATE\TIMOLOL MALEATE
     Indication: GLAUCOMA
     Dosage: 1 DF, BID (C/D, BID)
     Route: 065

REACTIONS (4)
  - Urinary tract infection [Recovered/Resolved]
  - Chest pain [Recovered/Resolved]
  - Streptococcal sepsis [Recovered/Resolved]
  - Enteritis [Recovered/Resolved]

NARRATIVE: CASE EVENT DATE: 20131213
